FAERS Safety Report 13844975 (Version 2)
Quarter: 2017Q3

REPORT INFORMATION
  Report Type: Report from Study
  Country: IQ (occurrence: IQ)
  Receive Date: 20170808
  Receipt Date: 20170918
  Transmission Date: 20171127
  Serious: Yes (Other)
  Sender: FDA-Public Use
  Company Number: PHHY2015IQ097386

PATIENT
  Sex: Female

DRUGS (1)
  1. GLIVEC [Suspect]
     Active Substance: IMATINIB MESYLATE
     Indication: PRODUCT USED FOR UNKNOWN INDICATION
     Dosage: 200 MG, BID
     Route: 048
     Dates: start: 2011

REACTIONS (11)
  - Abdominal pain upper [Recovering/Resolving]
  - Nausea [Recovering/Resolving]
  - Suicide threat [Unknown]
  - Fungal infection [Recovered/Resolved]
  - Pallor [Not Recovered/Not Resolved]
  - Inappropriate schedule of drug administration [Not Recovered/Not Resolved]
  - Nervousness [Recovered/Resolved]
  - Mood altered [Unknown]
  - Mental impairment [Recovering/Resolving]
  - Tooth disorder [Not Recovered/Not Resolved]
  - Pallor [Recovered/Resolved]
